FAERS Safety Report 10520637 (Version 1)
Quarter: 2014Q4

REPORT INFORMATION
  Report Type: Spontaneous
  Country: US (occurrence: US)
  Receive Date: 20141015
  Receipt Date: 20141015
  Transmission Date: 20150528
  Serious: No
  Sender: FDA-Public Use
  Company Number: US-SA-2014SA083401

PATIENT
  Age: 51 Year
  Sex: Male

DRUGS (1)
  1. AVALIDE [Suspect]
     Active Substance: HYDROCHLOROTHIAZIDE\IRBESARTAN
     Indication: HYPERTENSION
     Route: 065

REACTIONS (7)
  - Back pain [Unknown]
  - Headache [Unknown]
  - Oedema peripheral [Unknown]
  - Blood pressure increased [Unknown]
  - Drug ineffective [Unknown]
  - Pain in extremity [Unknown]
  - Incorrect dose administered [Unknown]
